FAERS Safety Report 6927424-2 (Version None)
Quarter: 2010Q3

REPORT INFORMATION
  Report Type: 
  Country: None (occurrence: None)
  Receive Date: 20100817
  Receipt Date: 20100805
  Transmission Date: 20110219
  Serious: Yes (Other)
  Sender: FDA-Public Use
  Company Number: CN-PFIZER INC-2010098198

PATIENT
  Age: 10 Year
  Sex: Male

DRUGS (4)
  1. AZITHROMYCIN [Suspect]
     Indication: BRONCHITIS
     Dosage: UNK
     Route: 042
     Dates: start: 20060601, end: 20060601
  2. MAGNESIUM SULFATE [Concomitant]
     Indication: BRONCHITIS
     Dosage: UNK
     Route: 042
     Dates: start: 20060601
  3. CEPHALORIDINE [Concomitant]
     Indication: BRONCHITIS
     Route: 042
  4. VITAMINS [Concomitant]
     Indication: BRONCHITIS
     Route: 042

REACTIONS (6)
  - ABDOMINAL PAIN [None]
  - CHILLS [None]
  - CONJUNCTIVAL HAEMORRHAGE [None]
  - CONJUNCTIVAL HYPERAEMIA [None]
  - NAUSEA [None]
  - PYREXIA [None]
